FAERS Safety Report 21435801 (Version 1)
Quarter: 2022Q4

REPORT INFORMATION
  Report Type: Spontaneous
  Country: DK (occurrence: DK)
  Receive Date: 20221010
  Receipt Date: 20221010
  Transmission Date: 20230113
  Serious: Yes (Hospitalization)
  Sender: FDA-Public Use
  Company Number: None

PATIENT
  Age: 79 Year
  Sex: Female

DRUGS (1)
  1. FRAGMIN [Suspect]
     Active Substance: DALTEPARIN SODIUM
     Indication: Pulmonary embolism
     Dosage: 18000 IU, 1X/DAY (SHORTLY PAUSED 09APR2021 DUE TO ENDOSCOPY)
     Dates: start: 20210329, end: 202104

REACTIONS (9)
  - Dysphagia [Not Recovered/Not Resolved]
  - Gaze palsy [Unknown]
  - Facial paralysis [Not Recovered/Not Resolved]
  - Dysarthria [Unknown]
  - Aphasia [Unknown]
  - Heparin-induced thrombocytopenia [Recovered/Resolved]
  - Cerebral infarction [Recovered/Resolved with Sequelae]
  - Hemiplegia [Not Recovered/Not Resolved]
  - Cerebral haemorrhage [Recovered/Resolved with Sequelae]

NARRATIVE: CASE EVENT DATE: 20210401
